FAERS Safety Report 5906004-1 (Version None)
Quarter: 2008Q4

REPORT INFORMATION
  Report Type: 
  Country: None (occurrence: None)
  Receive Date: 20081002
  Receipt Date: 20081001
  Transmission Date: 20090506
  Serious: Yes (Life-Threatening)
  Sender: FDA-Public Use
  Company Number: JP-BAYER-200812329BYL

PATIENT
  Age: 73 Year
  Sex: Male

DRUGS (2)
  1. CIPROXAN-I.V. [Suspect]
     Indication: DRUG USE FOR UNKNOWN INDICATION
     Dosage: TOTAL DAILY DOSE: 600 MG  UNIT DOSE: 300 MG
     Route: 042
     Dates: start: 20080926
  2. FUNGUARD [Concomitant]
     Indication: DRUG USE FOR UNKNOWN INDICATION
     Dosage: TOTAL DAILY DOSE: 150 MG  UNIT DOSE: 150 MG
     Route: 042
     Dates: start: 20080927

REACTIONS (1)
  - LIVER DISORDER [None]
